FAERS Safety Report 6659631-0 (Version None)
Quarter: 2010Q1

REPORT INFORMATION
  Report Type: 
  Country: None (occurrence: None)
  Receive Date: 20100330
  Receipt Date: 20100318
  Transmission Date: 20100710
  Serious: Yes (Other)
  Sender: FDA-Public Use
  Company Number: US-PFIZER INC-2008095645

PATIENT
  Sex: Female
  Weight: 54.5 kg

DRUGS (8)
  1. DETROL LA [Suspect]
     Indication: HYPERTONIC BLADDER
     Dosage: 4 MG, 1X/DAY
     Route: 048
     Dates: start: 20090101
  2. TOVIAZ [Suspect]
     Dosage: UNK
  3. FOSAMAX [Concomitant]
  4. LIPITOR [Concomitant]
  5. DARIFENACIN HYDROBROMIDE [Concomitant]
     Dosage: UNK
  6. DITROPAN [Concomitant]
     Dosage: UNK
  7. VESICARE [Concomitant]
     Dosage: UNK
  8. MICONAZOLE [Concomitant]
     Dosage: UNK

REACTIONS (3)
  - DEPRESSION [None]
  - DRUG INEFFECTIVE [None]
  - DYSURIA [None]
